FAERS Safety Report 9801909 (Version 1)
Quarter: 2014Q1

REPORT INFORMATION
  Report Type: Spontaneous
  Country: US (occurrence: US)
  Receive Date: 20140107
  Receipt Date: 20140107
  Transmission Date: 20141002
  Serious: No
  Sender: FDA-Public Use
  Company Number: US-ALLERGAN-1304608US

PATIENT
  Age: 31 Year
  Sex: Female

DRUGS (3)
  1. ACZONE [Suspect]
     Indication: ACNE
     Route: 061
  2. DOXYCYCLINE [Concomitant]
     Indication: ACNE
     Dosage: UNK UNK, QOD
     Route: 048
  3. RETIN A [Concomitant]
     Indication: ACNE
     Dosage: UNK UNK, QOD
     Route: 061

REACTIONS (2)
  - Inappropriate schedule of drug administration [Unknown]
  - Drug ineffective [Unknown]
